FAERS Safety Report 19369672 (Version 1)
Quarter: 2021Q2

REPORT INFORMATION
  Report Type: Spontaneous
  Country: DE (occurrence: DE)
  Receive Date: 20210603
  Receipt Date: 20210603
  Transmission Date: 20210717
  Serious: Yes (Other)
  Sender: FDA-Public Use
  Company Number: DE-ZO SKIN HEALTH-2021ZOS00008

PATIENT
  Age: 60 Year
  Sex: Male

DRUGS (2)
  1. TRETINOIN. [Suspect]
     Active Substance: TRETINOIN
     Indication: MULTIPLE SCLEROSIS
     Dosage: 45 MG/M2, 1X/DAY (FIRST 15 DAYS OF 30 DAY CYCLE)
     Route: 048
  2. PRAMIPEXOLE. [Concomitant]
     Active Substance: PRAMIPEXOLE
     Route: 065

REACTIONS (1)
  - Multiple sclerosis [Recovered/Resolved]
